FAERS Safety Report 26087737 (Version 1)
Quarter: 2025Q4

REPORT INFORMATION
  Report Type: Spontaneous
  Country: EU (occurrence: EU)
  Receive Date: 20251125
  Receipt Date: 20251125
  Transmission Date: 20260118
  Serious: Yes (Hospitalization)
  Sender: PFIZER
  Company Number: EU-PFIZER INC-202500229889

PATIENT
  Sex: Female

DRUGS (2)
  1. LORLATINIB [Suspect]
     Active Substance: LORLATINIB
     Indication: Non-small cell lung cancer
     Dosage: 100 MG
  2. LORLATINIB [Suspect]
     Active Substance: LORLATINIB
     Indication: Metastases to central nervous system

REACTIONS (1)
  - Cyclothymic disorder [Recovered/Resolved]
